FAERS Safety Report 7493092-7 (Version None)
Quarter: 2011Q2

REPORT INFORMATION
  Report Type: 
  Country: None (occurrence: None)
  Receive Date: 20110519
  Receipt Date: 20110519
  Transmission Date: 20111010
  Serious: Yes (Disabling)
  Sender: FDA-Public Use
  Company Number: None

PATIENT
  Age: 65 Year
  Sex: Male
  Weight: 135 kg

DRUGS (1)
  1. VANCOMYCIN [Suspect]
     Indication: CELLULITIS
     Dosage: 1500MG X2, 500MG X1 ONE TIME DOSES IV
     Route: 042
     Dates: start: 20110511, end: 20110512

REACTIONS (1)
  - BLOOD CREATININE INCREASED [None]
